FAERS Safety Report 5269313-8 (Version None)
Quarter: 2007Q1

REPORT INFORMATION
  Report Type: 
  Country: None (occurrence: None)
  Receive Date: 20070319
  Receipt Date: 20070307
  Transmission Date: 20070707
  Serious: Yes (Death, Hospitalization, Disabling)
  Sender: FDA-Public Use
  Company Number: JP-PFIZER INC-2007012534

PATIENT
  Sex: Male
  Weight: 56 kg

DRUGS (11)
  1. VFEND [Suspect]
     Indication: CANDIDIASIS
     Route: 042
     Dates: start: 20070107, end: 20070117
  2. PRODIF [Suspect]
     Dosage: DAILY DOSE:252.3MG
     Route: 042
     Dates: start: 20061130, end: 20070106
  3. SULPERAZON [Suspect]
     Dosage: TEXT:1G; 2G
     Route: 042
     Dates: start: 20070101, end: 20070106
  4. IMMUNE GLOBULIN INTRAVENOUS (HUMAN) [Concomitant]
     Route: 042
  5. CYCLOSPORINE [Concomitant]
     Route: 042
     Dates: start: 20061204, end: 20070107
  6. VANCOMYCIN [Concomitant]
     Route: 042
     Dates: start: 20070101, end: 20070112
  7. PAZUFLOXACIN [Concomitant]
     Route: 042
     Dates: start: 20070106, end: 20070112
  8. IMMUNOGLOBULINS [Concomitant]
     Route: 042
     Dates: start: 20070111, end: 20070111
  9. MYCOPHENOLATE MOFETIL [Concomitant]
     Route: 048
     Dates: start: 20061220, end: 20070128
  10. MORPHINE [Concomitant]
     Route: 042
     Dates: start: 20061126, end: 20070108
  11. PREDNISOLONE [Concomitant]
     Route: 042
     Dates: start: 20070102, end: 20070110

REACTIONS (11)
  - CANDIDIASIS [None]
  - CONDITION AGGRAVATED [None]
  - DEPRESSED LEVEL OF CONSCIOUSNESS [None]
  - DRUG INEFFECTIVE [None]
  - DRUG LEVEL INCREASED [None]
  - EPILEPSY [None]
  - GUILLAIN-BARRE SYNDROME [None]
  - HEPATIC FAILURE [None]
  - NO THERAPEUTIC RESPONSE [None]
  - SLEEP APNOEA SYNDROME [None]
  - THROMBOTIC MICROANGIOPATHY [None]
